FAERS Safety Report 11250513 (Version 1)
Quarter: 2015Q3

REPORT INFORMATION
  Report Type: Spontaneous
  Country: US (occurrence: US)
  Receive Date: 20150708
  Receipt Date: 20150708
  Transmission Date: 20151125
  Serious: Yes (Death, Life-Threatening, Hospitalization)
  Sender: FDA-Public Use
  Company Number: US-ELI_LILLY_AND_COMPANY-US201012006493

PATIENT
  Sex: Male
  Weight: 75.92 kg

DRUGS (15)
  1. PA [Concomitant]
     Active Substance: ASPIRIN\CAFFEINE\PROMETHAZINE\SALICYLAMIDE
  2. SULCRATE [Concomitant]
     Active Substance: SUCRALFATE
  3. COLACE [Concomitant]
     Active Substance: DOCUSATE SODIUM
  4. IRON [Concomitant]
     Active Substance: IRON
  5. NEURONTIN [Concomitant]
     Active Substance: GABAPENTIN
  6. LIPITOR [Concomitant]
     Active Substance: ATORVASTATIN CALCIUM
  7. GEMZAR [Suspect]
     Active Substance: GEMCITABINE HYDROCHLORIDE
     Indication: PANCREATIC CARCINOMA
     Dosage: 1000 MG/M2, UNK
     Route: 042
     Dates: start: 20100226, end: 20101211
  8. CREON [Concomitant]
     Active Substance: PANCRELIPASE AMYLASE\PANCRELIPASE LIPASE\PANCRELIPASE PROTEASE
  9. FINASTERIDE. [Concomitant]
     Active Substance: FINASTERIDE
  10. COMPAZINE [Concomitant]
     Active Substance: PROCHLORPERAZINE MALEATE
  11. FLOMAX [Concomitant]
     Active Substance: TAMSULOSIN HYDROCHLORIDE
  12. ZOTON [Concomitant]
     Active Substance: LANSOPRAZOLE
  13. ZANTAC [Concomitant]
     Active Substance: RANITIDINE HYDROCHLORIDE
  14. ASTELIN [Concomitant]
     Active Substance: AZELASTINE HYDROCHLORIDE
  15. ASA [Concomitant]
     Active Substance: ASPIRIN

REACTIONS (1)
  - Acute respiratory distress syndrome [Fatal]
